FAERS Safety Report 5840918-6 (Version None)
Quarter: 2008Q3

REPORT INFORMATION
  Report Type: 
  Country: None (occurrence: None)
  Receive Date: 20080811
  Receipt Date: 20080730
  Transmission Date: 20090109
  Serious: Yes (Hospitalization, Other)
  Sender: FDA-Public Use
  Company Number: ES-PFIZER INC-2008063901

PATIENT
  Sex: Male
  Weight: 80 kg

DRUGS (3)
  1. GENOTROPIN [Suspect]
     Indication: HYPOPITUITARISM
     Route: 058
  2. TESTOSTERONE ENANTHATE [Concomitant]
     Dosage: DAILY DOSE:250MG
     Route: 030
  3. HYDROCORTISONE [Concomitant]
     Route: 048

REACTIONS (1)
  - PITUITARY TUMOUR BENIGN [None]
